FAERS Safety Report 16701341 (Version 1)
Quarter: 2019Q3

REPORT INFORMATION
  Report Type: Spontaneous
  Country: US (occurrence: US)
  Receive Date: 20190627
  Receipt Date: 20190627
  Transmission Date: 20191004
  Serious: Yes (Hospitalization)
  Sender: FDA-Public Use
  Company Number: None

PATIENT
  Age: 70 Year
  Sex: Female

DRUGS (14)
  1. FOLIC ACID. [Concomitant]
     Active Substance: FOLIC ACID
  2. ASPIRIN CHW [Concomitant]
  3. PRILOSEC [Concomitant]
     Active Substance: OMEPRAZOLE MAGNESIUM
  4. OTREXUP [Suspect]
     Active Substance: METHOTREXATE
     Indication: RHEUMATOID ARTHRITIS
     Dosage: ?          OTHER FREQUENCY:QWK;?
     Route: 058
     Dates: start: 20190411
  5. LISINOPRIL. [Concomitant]
     Active Substance: LISINOPRIL
  6. PREDISONE [Concomitant]
     Active Substance: PREDNISONE
  7. SYSTANE SOL [Concomitant]
  8. ATORVASTATIN TAB [Concomitant]
     Active Substance: ATORVASTATIN
  9. XELJANZ [Concomitant]
     Active Substance: TOFACITINIB CITRATE
  10. DICLOFENAC TAB [Concomitant]
  11. RESTASIS [Concomitant]
     Active Substance: CYCLOSPORINE
  12. STOOL SOFNR [Concomitant]
  13. VESICARE [Concomitant]
     Active Substance: SOLIFENACIN SUCCINATE
  14. NORCO [Concomitant]
     Active Substance: ACETAMINOPHEN\HYDROCODONE BITARTRATE

REACTIONS (2)
  - Condition aggravated [None]
  - Pyrexia [None]

NARRATIVE: CASE EVENT DATE: 201905
